FAERS Safety Report 19253277 (Version 1)
Quarter: 2021Q2

REPORT INFORMATION
  Report Type: Report from Study
  Country: US (occurrence: US)
  Receive Date: 20210513
  Receipt Date: 20210513
  Transmission Date: 20210717
  Serious: Yes (Other)
  Sender: FDA-Public Use
  Company Number: US-TAKEDA-2014BAX046130

PATIENT
  Sex: Female

DRUGS (2)
  1. HUMAN NORMAL IMMUNOGLOBULIN; LIQUID [Suspect]
     Active Substance: HUMAN IMMUNOGLOBULIN G
     Indication: PRODUCT USED FOR UNKNOWN INDICATION
     Dosage: UNK
     Route: 065
  2. CUVITRU [Suspect]
     Active Substance: HUMAN IMMUNOGLOBULIN G
     Indication: PRIMARY IMMUNODEFICIENCY SYNDROME
     Dosage: 20 GRAM, Q2WEEKS
     Route: 065

REACTIONS (8)
  - Psoriatic arthropathy [Unknown]
  - Ear infection [Unknown]
  - Upper respiratory tract infection [Unknown]
  - Illness [Unknown]
  - Fatigue [Unknown]
  - Therapy interrupted [Unknown]
  - Nasopharyngitis [Recovering/Resolving]
  - Inability to afford medication [Unknown]
